FAERS Safety Report 6422460-7 (Version None)
Quarter: 2009Q4

REPORT INFORMATION
  Report Type: 
  Country: None (occurrence: None)
  Receive Date: 20091030
  Receipt Date: 20091020
  Transmission Date: 20100525
  Serious: Yes (Hospitalization)
  Sender: FDA-Public Use
  Company Number: JP-AMGEN-US363558

PATIENT
  Sex: Female

DRUGS (8)
  1. ENBREL [Suspect]
     Indication: RHEUMATOID ARTHRITIS
     Route: 058
     Dates: start: 20090715, end: 20090801
  2. ISONIAZID [Suspect]
     Route: 048
     Dates: start: 20090715, end: 20090801
  3. PREDNISOLONE [Concomitant]
     Dosage: UNSPECIFIED
     Route: 048
  4. NORVASC [Concomitant]
     Route: 048
     Dates: end: 20090801
  5. ALFACALCIDOL [Concomitant]
     Route: 048
     Dates: end: 20090801
  6. LANSOPRAZOLE [Concomitant]
     Route: 048
     Dates: end: 20090801
  7. LOXONIN [Concomitant]
     Route: 048
     Dates: end: 20090801
  8. PYDOXAL [Concomitant]
     Route: 048
     Dates: end: 20090801

REACTIONS (2)
  - HEPATIC FUNCTION ABNORMAL [None]
  - HEPATIC STEATOSIS [None]
